FAERS Safety Report 7580106-9 (Version None)
Quarter: 2011Q2

REPORT INFORMATION
  Report Type: 
  Country: None (occurrence: None)
  Receive Date: 20110629
  Receipt Date: 20110621
  Transmission Date: 20111010
  Serious: Yes (Other)
  Sender: FDA-Public Use
  Company Number: CA-ELI_LILLY_AND_COMPANY-CA201106006013

PATIENT
  Sex: Male
  Weight: 100 kg

DRUGS (14)
  1. CONCERTA [Concomitant]
  2. ALTACE [Concomitant]
  3. CIALIS [Concomitant]
  4. PROPRANOLOL [Concomitant]
  5. FLOMAX [Concomitant]
  6. PROSCAR [Concomitant]
  7. ZYPREXA [Suspect]
     Indication: OBSESSIVE-COMPULSIVE DISORDER
     Dosage: 2.5 MG, EACH EVENING
  8. VALIUM [Concomitant]
  9. ZYPREXA [Suspect]
     Dosage: 5 MG, EACH EVENING
  10. BUSPIRONE HCL [Concomitant]
  11. CLOMIPRAMINE HYDROCHLORIDE [Concomitant]
  12. QUETIAPINE [Concomitant]
  13. LEVITRA [Concomitant]
  14. PAXIL [Concomitant]

REACTIONS (7)
  - OFF LABEL USE [None]
  - BLOOD IRON ABNORMAL [None]
  - ORTHOSTATIC HYPOTENSION [None]
  - DIABETES MELLITUS [None]
  - LIPIDS ABNORMAL [None]
  - AORTIC ANEURYSM [None]
  - WEIGHT INCREASED [None]
